FAERS Safety Report 7580047-7 (Version None)
Quarter: 2011Q2

REPORT INFORMATION
  Report Type: 
  Country: None (occurrence: None)
  Receive Date: 20110622
  Receipt Date: 20110606
  Transmission Date: 20111010
  Serious: Yes (Life-Threatening, Hospitalization)
  Sender: FDA-Public Use
  Company Number: LTI2011A00145

PATIENT
  Age: 56 Year
  Sex: Male

DRUGS (13)
  1. DIAMICRON (GLICLAZIDE) [Suspect]
     Indication: TYPE 2 DIABETES MELLITUS
     Dosage: 30 MG (30 MG, 1 IN 1 D) ORAL
     Route: 048
     Dates: start: 20060101
  2. JANUVIA [Suspect]
     Indication: TYPE 2 DIABETES MELLITUS
     Dosage: 100 MG (100 MG, 1 IN 1 D) ORAL
     Route: 048
     Dates: start: 20091001
  3. MINIRIN [Suspect]
     Indication: DIABETES INSIPIDUS
     Dosage: 300 MCG (100 MCG, 3 IN 1 D) ORAL
     Route: 048
     Dates: start: 19950101
  4. ASPIRIN [Suspect]
     Indication: CONGESTIVE CARDIOMYOPATHY
     Dosage: 75 MG (75 MG, 1 IN 1 D) ORAL
     Route: 048
     Dates: start: 20091201
  5. BISOPROLOL FUMARATE [Suspect]
     Indication: CONGESTIVE CARDIOMYOPATHY
     Dosage: 2.5 MG (2.5 MG, 1 IN 1 D) ORAL
     Route: 048
     Dates: start: 20091201
  6. FENOFIBRATE [Suspect]
     Indication: HYPERTRIGLYCERIDAEMIA
     Dosage: 200 MG (200 MG, 1 IN 1 D) ORAL
     Route: 048
     Dates: start: 20060101
  7. PERINDOPRIL ERBUMINE [Suspect]
     Indication: CONGESTIVE CARDIOMYOPATHY
     Dosage: 2.5 MG (2.5 MG, 1 IN 1 D) ORAL
     Route: 048
     Dates: start: 20091201
  8. KAYEXALATE [Suspect]
     Indication: HYPERKALAEMIA
     Dosage: (1 DF, 1 IN 2 WK) ORAL
     Route: 048
     Dates: start: 20100501
  9. KAYEXALATE [Suspect]
     Indication: CONGESTIVE CARDIOMYOPATHY
     Dosage: (1 DF, 1 IN 2 WK) ORAL
     Route: 048
     Dates: start: 20100501
  10. ACTOS [Suspect]
     Indication: TYPE 2 DIABETES MELLITUS
     Dosage: 30 MG (30 MG, 1 IN 1 D) ORAL
     Route: 048
     Dates: start: 20060301, end: 20100201
  11. ALLOPURINOL [Suspect]
     Indication: HYPERURICAEMIA
     Dosage: 300 MG (300 MG, 1 IN 1 D) ORAL
     Route: 048
     Dates: start: 20060101
  12. PRAZOSIN HCL [Suspect]
     Indication: CONGESTIVE CARDIOMYOPATHY
     Dosage: 5 MG (5 MG, 1 IN 1 D) ORAL
     Route: 048
     Dates: start: 20060101, end: 20100201
  13. PRAZOSIN HCL [Suspect]
     Indication: HYPERTENSION
     Dosage: 5 MG (5 MG, 1 IN 1 D) ORAL
     Route: 048
     Dates: start: 20060101, end: 20100201

REACTIONS (3)
  - BLADDER CANCER [None]
  - CARDIOMYOPATHY [None]
  - CONDITION AGGRAVATED [None]
